FAERS Safety Report 23547403 (Version 2)
Quarter: 2024Q1

REPORT INFORMATION
  Report Type: Spontaneous
  Country: US (occurrence: US)
  Receive Date: 20240221
  Receipt Date: 20240301
  Transmission Date: 20240409
  Serious: Yes (Other)
  Sender: FDA-Public Use
  Company Number: US-ABBVIE-5647238

PATIENT
  Age: 75 Year
  Sex: Male

DRUGS (7)
  1. OZURDEX [Suspect]
     Active Substance: DEXAMETHASONE
     Indication: Retinal vein occlusion
     Dosage: TIME INTERVAL: AS NECESSARY: FORM STRENGTH WAS 0.7 MILLIGRAM?FREQUENCY WAS EVERY 12 WEEKS
     Route: 050
     Dates: start: 20240201
  2. OZURDEX [Suspect]
     Active Substance: DEXAMETHASONE
     Indication: Macular oedema
     Dosage: TIME INTERVAL: AS NECESSARY: FORM STRENGTH WAS 0.7 MILLIGRAM?FREQUENCY WAS EVERY 12 WEEKS
     Route: 050
     Dates: start: 202205
  3. DORZOLAMIDE [Concomitant]
     Active Substance: DORZOLAMIDE
     Indication: Eye disorder
     Dosage: GTT, 1: DOSE, ROUTE: TOPICAL OCULAR
     Route: 061
     Dates: start: 20231221
  4. BETADINE [Concomitant]
     Active Substance: POVIDONE-IODINE
     Indication: Product used for unknown indication
     Dosage: OCULAR SURFACE?5%
     Route: 065
  5. CEFTAZIDIME [Concomitant]
     Active Substance: CEFTAZIDIME
     Indication: Product used for unknown indication
     Dosage: FORM STRENGTH WAS 2.25 MG/0.1 ML
     Route: 065
  6. VANCOMYCIN [Concomitant]
     Active Substance: VANCOMYCIN
     Indication: Product used for unknown indication
     Dosage: FORM STRENGTH WAS 1 MG/0.1 ML
     Route: 050
  7. BRIMONIDINE [Concomitant]
     Active Substance: BRIMONIDINE TARTRATE
     Indication: Eye disorder
     Dosage: TIME INTERVAL: 0.33333333 DAYS: GTT, 1: DOSE, ROUTE: TOPICAL OCULAR
     Route: 061
     Dates: start: 20231221

REACTIONS (10)
  - Macular oedema [Recovered/Resolved]
  - Vitreous haemorrhage [Unknown]
  - Retinal detachment [Unknown]
  - Blindness unilateral [Unknown]
  - Anterior chamber flare [Unknown]
  - Endophthalmitis [Recovered/Resolved]
  - Vitrectomy [Unknown]
  - Vitritis [Unknown]
  - Staphylococcal infection [Unknown]
  - Vitreous floaters [Unknown]

NARRATIVE: CASE EVENT DATE: 20240206
